FAERS Safety Report 16964252 (Version 1)
Quarter: 2019Q4

REPORT INFORMATION
  Report Type: Spontaneous
  Country: US (occurrence: US)
  Receive Date: 20191025
  Receipt Date: 20191025
  Transmission Date: 20200122
  Serious: No
  Sender: FDA-Public Use
  Company Number: None

PATIENT
  Age: 77 Year
  Sex: Male
  Weight: 112.5 kg

DRUGS (26)
  1. ASPIRIN. [Concomitant]
     Active Substance: ASPIRIN
  2. FLOVENT HFA [Concomitant]
     Active Substance: FLUTICASONE PROPIONATE
  3. VOLTARIN [Concomitant]
  4. PROAIR HFA [Concomitant]
     Active Substance: ALBUTEROL SULFATE
  5. MIRALAX [Concomitant]
     Active Substance: POLYETHYLENE GLYCOL 3350
  6. XPOVIO [Suspect]
     Active Substance: SELINEXOR
     Indication: PULMONARY FIBROSIS
     Dates: start: 20190823
  7. CLARITIN [Concomitant]
     Active Substance: LORATADINE
  8. LASIX [Concomitant]
     Active Substance: FUROSEMIDE
  9. VITAMIN D [Concomitant]
     Active Substance: VITAMIN D NOS
  10. STOOL SOFTNER [Concomitant]
  11. XPOVIO [Suspect]
     Active Substance: SELINEXOR
     Indication: BONE CANCER
     Dates: start: 20190823
  12. NORCO [Concomitant]
     Active Substance: ACETAMINOPHEN\HYDROCODONE BITARTRATE
  13. XPOVIO [Suspect]
     Active Substance: SELINEXOR
     Indication: PLASMA CELL MYELOMA
     Dates: start: 20190823
  14. XPOVIO [Suspect]
     Active Substance: SELINEXOR
     Indication: PRODUCT USED FOR UNKNOWN INDICATION
     Dates: start: 20190823
  15. XPOVIO [Suspect]
     Active Substance: SELINEXOR
     Indication: HYPOXIA
     Dates: start: 20190823
  16. XPOVIO [Suspect]
     Active Substance: SELINEXOR
     Indication: INTERSTITIAL LUNG DISEASE
     Dates: start: 20190823
  17. XPOVIO [Suspect]
     Active Substance: SELINEXOR
     Indication: NEPHROGENIC ANAEMIA
     Dates: start: 20190823
  18. RAMIPRIL. [Concomitant]
     Active Substance: RAMIPRIL
  19. TAMSULOSIN [Concomitant]
     Active Substance: TAMSULOSIN
  20. TRAMADOL. [Concomitant]
     Active Substance: TRAMADOL
  21. XPOVIO [Suspect]
     Active Substance: SELINEXOR
     Indication: CHRONIC KIDNEY DISEASE
     Dates: start: 20190823
  22. CARVEDILOL. [Concomitant]
     Active Substance: CARVEDILOL
  23. DEXAMETHASONE. [Concomitant]
     Active Substance: DEXAMETHASONE
  24. CENTRUM SILVER [Concomitant]
     Active Substance: MINERALS\VITAMINS
  25. LIDODERM [Concomitant]
     Active Substance: LIDOCAINE
  26. ZOFRAN [Concomitant]
     Active Substance: ONDANSETRON HYDROCHLORIDE

REACTIONS (3)
  - Fatigue [None]
  - Pancytopenia [None]
  - Nausea [None]

NARRATIVE: CASE EVENT DATE: 20191016
